FAERS Safety Report 8261491 (Version 2)
Quarter: 2013Q1

REPORT INFORMATION
  Report Type: Spontaneous
  Country: US (occurrence: US)
  Receive Date: 20111123
  Receipt Date: 20130225
  Transmission Date: 20140127
  Serious: Yes (Hospitalization)
  Sender: FDA-Public Use
  Company Number: US-GLAXOSMITHKLINE-A0922081A

PATIENT
  Age: 63 Year
  Sex: Male

DRUGS (1)
  1. AVANDIA [Suspect]
     Indication: DIABETES MELLITUS
     Dosage: 4MG PER DAY
     Route: 048
     Dates: start: 200601, end: 200703

REACTIONS (8)
  - Myocardial infarction [Not Recovered/Not Resolved]
  - Vascular graft [Unknown]
  - Coronary artery occlusion [Unknown]
  - Stent placement [Unknown]
  - Dyspnoea [Unknown]
  - Asthenia [Unknown]
  - Myalgia [Unknown]
  - Arthralgia [Unknown]
